FAERS Safety Report 22021781 (Version 8)
Quarter: 2023Q2

REPORT INFORMATION
  Report Type: Report from Study
  Country: US (occurrence: None)
  Receive Date: 20230222
  Receipt Date: 20230614
  Transmission Date: 20230722
  Serious: Yes (Hospitalization)
  Sender: FDA-Public Use
  Company Number: US-Eisai Inc (Eisai China)-EC-2023-134492

PATIENT
  Age: 54 Year
  Sex: Male
  Weight: 91.17 kg

DRUGS (15)
  1. LENVATINIB [Suspect]
     Active Substance: LENVATINIB
     Indication: Squamous cell carcinoma of head and neck
     Route: 048
     Dates: start: 20230117, end: 20230211
  2. TYLENOL [Concomitant]
     Active Substance: ACETAMINOPHEN
     Dates: start: 20220309
  3. COLACE [Concomitant]
     Active Substance: DOCUSATE SODIUM
     Dates: start: 20220309
  4. FERROUS SULFATE [Concomitant]
     Active Substance: FERROUS SULFATE
     Dates: start: 20221024, end: 20230221
  5. PREVIDENT 5000 BOOSTER [Concomitant]
     Active Substance: SODIUM FLUORIDE
     Dosage: RINSE
     Dates: start: 20221008
  6. NEURONTIN [Concomitant]
     Active Substance: GABAPENTIN
     Dates: start: 20221206, end: 20230316
  7. CLINDAMYCIN 1 A PHARMA [Concomitant]
     Dates: start: 20220629
  8. SINGULAIR [Concomitant]
     Active Substance: MONTELUKAST SODIUM
     Dates: start: 20220630
  9. ZOFRAN [Concomitant]
     Active Substance: ONDANSETRON HYDROCHLORIDE
     Dates: start: 20220301, end: 20230130
  10. SENOKOT [Concomitant]
     Active Substance: SENNOSIDES
     Dates: start: 20220617, end: 20230314
  11. KENALOG [Concomitant]
     Active Substance: TRIAMCINOLONE ACETONIDE
     Route: 061
     Dates: start: 20220629
  12. NYSTATIN [Concomitant]
     Active Substance: NYSTATIN
     Dosage: RINSE
     Dates: start: 20221114
  13. VIBRA-TABS [DOXYCYCLINE HYCLATE] [Concomitant]
     Dates: start: 20230124, end: 20230131
  14. COMPAZINE [Concomitant]
     Active Substance: PROCHLORPERAZINE MALEATE
     Dates: start: 20230202
  15. ALUMINIUM HYDROXIDE;DIPHENHYDRAMINE;LIDOCAINE;MAGNESIUM HYDROXIDE [Concomitant]
     Dates: start: 20221227

REACTIONS (2)
  - Laryngeal haemorrhage [Recovered/Resolved]
  - Laryngeal obstruction [Recovered/Resolved]

NARRATIVE: CASE EVENT DATE: 20230212
